FAERS Safety Report 14102219 (Version 1)
Quarter: 2017Q4

REPORT INFORMATION
  Report Type: Spontaneous
  Country: US (occurrence: US)
  Receive Date: 20171018
  Receipt Date: 20171018
  Transmission Date: 20180321
  Serious: No
  Sender: FDA-Public Use
  Company Number: US-LEXICON PHARMACEUTICALS, INC-17-1606-00913

PATIENT
  Age: 66 Year
  Sex: Female

DRUGS (3)
  1. TELOTRISTAT ETHYL [Suspect]
     Active Substance: TELOTRISTAT ETHYL
     Indication: CARCINOID TUMOUR
     Route: 048
     Dates: start: 20170913
  2. SOMATULINE DEPOT [Concomitant]
     Active Substance: LANREOTIDE ACETATE
  3. COLESTIDE [Concomitant]
     Dates: end: 20170913

REACTIONS (3)
  - Hyperhidrosis [Not Recovered/Not Resolved]
  - Presyncope [Recovered/Resolved]
  - Diarrhoea [Recovered/Resolved]

NARRATIVE: CASE EVENT DATE: 201709
